FAERS Safety Report 7900634-3 (Version None)
Quarter: 2011Q4

REPORT INFORMATION
  Report Type: 
  Country: None (occurrence: None)
  Receive Date: 20111108
  Receipt Date: 20111027
  Transmission Date: 20120403
  Serious: Yes (Other)
  Sender: FDA-Public Use
  Company Number: GB-AMGEN-GBRSP2011056726

PATIENT
  Age: 63 Year
  Sex: Male
  Weight: 70 kg

DRUGS (5)
  1. ETANERCEPT [Suspect]
     Indication: ANKYLOSING SPONDYLITIS
     Dosage: 50 MG, WEEKLY
     Route: 058
     Dates: start: 20110401, end: 20110901
  2. NAPROXEN [Concomitant]
     Dosage: UNK
  3. TRAMADOL HCL [Concomitant]
     Dosage: UNK
  4. VALSARTAN [Concomitant]
     Dosage: UNK
  5. LANSOPRAZOLE [Concomitant]
     Dosage: UNK

REACTIONS (3)
  - VISUAL ACUITY REDUCED [None]
  - COLOUR BLINDNESS ACQUIRED [None]
  - OPTIC NEUROPATHY [None]
